FAERS Safety Report 8327638-3 (Version None)
Quarter: 2012Q2

REPORT INFORMATION
  Report Type: 
  Country: None (occurrence: None)
  Receive Date: 20120502
  Receipt Date: 20120425
  Transmission Date: 20120825
  Serious: Yes (Hospitalization)
  Sender: FDA-Public Use
  Company Number: US-BAYER-2012-041817

PATIENT
  Age: 20 Year
  Sex: Female
  Weight: 99.773 kg

DRUGS (8)
  1. SPIRONOLACTONE [Concomitant]
     Indication: ACNE
     Dosage: 100 MG, BID
  2. MEDROL [Concomitant]
     Dosage: UNK
     Dates: start: 20110113
  3. YAZ [Suspect]
     Indication: ACNE
     Dosage: UNK
     Dates: end: 20110114
  4. ALBUTEROL [Concomitant]
     Dosage: UNK UNK, PRN
  5. ZYRTEC [Concomitant]
     Dosage: 100 MG, QD
  6. ALLERX [Concomitant]
     Indication: SEASONAL ALLERGY
  7. SULFAMETHOXAZOLE + TRIMETHOPRIM [Concomitant]
     Indication: ACNE
     Dosage: UNK UNK, BID
  8. ROBITUSSIN AC [Concomitant]
     Dosage: UNK
     Dates: start: 20110113

REACTIONS (1)
  - PULMONARY EMBOLISM [None]
